FAERS Safety Report 5726997-5 (Version None)
Quarter: 2008Q2

REPORT INFORMATION
  Report Type: 
  Country: None (occurrence: None)
  Receive Date: 20080505
  Receipt Date: 20080422
  Transmission Date: 20081010
  Serious: Yes (Other)
  Sender: FDA-Public Use
  Company Number: ES-ELI_LILLY_AND_COMPANY-ES200804005458

PATIENT
  Age: 86 Year
  Sex: Male

DRUGS (2)
  1. ZYPREXA [Suspect]
     Indication: AGITATION
     Dosage: 10 MG, UNK
     Route: 048
     Dates: start: 20060512, end: 20060514
  2. CYANOCOBALAMIN [Concomitant]
     Dates: start: 20050802

REACTIONS (2)
  - EXTRASYSTOLES [None]
  - PRESYNCOPE [None]
